FAERS Safety Report 23527607 (Version 3)
Quarter: 2024Q1

REPORT INFORMATION
  Report Type: Spontaneous
  Country: NL (occurrence: NL)
  Receive Date: 20240215
  Receipt Date: 20240221
  Transmission Date: 20240410
  Serious: Yes (Hospitalization)
  Sender: FDA-Public Use
  Company Number: NL-ROCHE-3503930

PATIENT
  Age: 62 Year
  Sex: Male

DRUGS (2)
  1. BEVACIZUMAB [Suspect]
     Active Substance: BEVACIZUMAB
     Indication: Metastases to lymph nodes
     Dosage: 1375 MG, EVERY 3 WEEKS (RECEIVED THE MOST RECENT DOSE)
     Route: 042
     Dates: start: 20240119
  2. ATEZOLIZUMAB [Suspect]
     Active Substance: ATEZOLIZUMAB
     Indication: Metastases to lymph nodes
     Dosage: 1200 MG, EVERY 3 WEEKS (RECEIVED THE MOST RECENT DOSE)
     Route: 042
     Dates: start: 20240119

REACTIONS (2)
  - Pyrexia [Unknown]
  - Off label use [Unknown]

NARRATIVE: CASE EVENT DATE: 20240119
